FAERS Safety Report 21165587 (Version 1)
Quarter: 2022Q3

REPORT INFORMATION
  Report Type: Spontaneous
  Country: US (occurrence: US)
  Receive Date: 20220803
  Receipt Date: 20220803
  Transmission Date: 20221027
  Serious: Yes (Other)
  Sender: FDA-Public Use
  Company Number: US-MYLANLABS-2022M1083014

PATIENT
  Age: 65 Year
  Sex: Female

DRUGS (15)
  1. LITHIUM [Suspect]
     Active Substance: LITHIUM
     Indication: Bipolar disorder
     Dosage: UNK
     Route: 065
  2. PERPHENAZINE [Suspect]
     Active Substance: PERPHENAZINE
     Indication: Bipolar disorder
     Dosage: 16 MILLIGRAM, QD
     Route: 065
  3. PERPHENAZINE [Suspect]
     Active Substance: PERPHENAZINE
     Dosage: 4 MILLIGRAM, QD
     Route: 065
  4. PERPHENAZINE [Suspect]
     Active Substance: PERPHENAZINE
     Dosage: 4 MILLIGRAM, BID
     Route: 065
  5. VALPROIC ACID [Suspect]
     Active Substance: VALPROIC ACID
     Indication: Bipolar disorder
     Dosage: 1500 MILLIGRAM, QD
     Route: 065
  6. VALPROIC ACID [Suspect]
     Active Substance: VALPROIC ACID
     Dosage: 750 MILLIGRAM, QD
     Route: 065
  7. VALPROIC ACID [Suspect]
     Active Substance: VALPROIC ACID
     Dosage: 500 MILLIGRAM, QD
     Route: 065
  8. ESCITALOPRAM [Suspect]
     Active Substance: ESCITALOPRAM OXALATE
     Indication: Depression
     Dosage: 10 MILLIGRAM, QD
     Route: 065
     Dates: start: 201904
  9. ESCITALOPRAM [Suspect]
     Active Substance: ESCITALOPRAM OXALATE
     Indication: Anxiety
  10. LURASIDONE [Suspect]
     Active Substance: LURASIDONE
     Indication: Bipolar disorder
     Dosage: 120 MILLIGRAM, QD
     Route: 065
  11. LURASIDONE [Suspect]
     Active Substance: LURASIDONE
     Dosage: 60 MILLIGRAM, QD
     Route: 065
  12. LURASIDONE [Suspect]
     Active Substance: LURASIDONE
     Dosage: 40 MILLIGRAM, QD
     Route: 065
  13. TEMAZEPAM [Suspect]
     Active Substance: TEMAZEPAM
     Indication: Bipolar disorder
     Dosage: 30 MILLIGRAM, QD
     Route: 065
  14. MELATONIN [Suspect]
     Active Substance: MELATONIN
     Indication: Insomnia
     Dosage: UNK (ADMINISTERED 5 TO 10 MG AS REQUIRED)
     Route: 065
  15. MELATONIN [Suspect]
     Active Substance: MELATONIN
     Dosage: 5 MILLIGRAM
     Route: 065

REACTIONS (2)
  - Hyponatraemia [Recovered/Resolved]
  - Off label use [Unknown]

NARRATIVE: CASE EVENT DATE: 20190401
